FAERS Safety Report 12162944 (Version 4)
Quarter: 2017Q3

REPORT INFORMATION
  Report Type: Spontaneous
  Country: BR (occurrence: BR)
  Receive Date: 20160309
  Receipt Date: 20170719
  Transmission Date: 20171127
  Serious: Yes (Hospitalization, Other)
  Sender: FDA-Public Use
  Company Number: BR-ELI_LILLY_AND_COMPANY-BR201603002102

PATIENT
  Sex: Male
  Weight: 110 kg

DRUGS (5)
  1. CILOSTAZOL. [Concomitant]
     Active Substance: CILOSTAZOL
     Indication: ANGIOPATHY
     Dosage: UNK, UNKNOWN
     Route: 065
  2. VARICOSS [Concomitant]
     Indication: ANGIOPATHY
     Dosage: UNK, UNKNOWN
     Route: 065
  3. HUMULIN N [Suspect]
     Active Substance: INSULIN HUMAN
     Indication: PRODUCT USED FOR UNKNOWN INDICATION
     Dosage: 40 IU, QD
     Route: 058
  4. HUMULIN R [Suspect]
     Active Substance: INSULIN HUMAN
     Indication: PRODUCT USED FOR UNKNOWN INDICATION
     Dosage: 5 IU, OTHER
     Route: 065
     Dates: start: 2007
  5. ETNA                               /08553901/ [Concomitant]
     Indication: ANGIOPATHY

REACTIONS (20)
  - Klebsiella infection [Unknown]
  - Decubitus ulcer [Unknown]
  - Muscle spasms [Unknown]
  - Blood glucose increased [Unknown]
  - Nail injury [Unknown]
  - Escherichia infection [Unknown]
  - Gastritis [Not Recovered/Not Resolved]
  - Motor dysfunction [Recovering/Resolving]
  - Necrosis [Recovering/Resolving]
  - Fall [Unknown]
  - Brachial plexus injury [Unknown]
  - Diabetes mellitus inadequate control [Unknown]
  - Diabetic hyperglycaemic coma [Recovered/Resolved]
  - Accident [Unknown]
  - Incorrect dose administered [Unknown]
  - Head injury [Unknown]
  - Weight increased [Unknown]
  - Blood glucose increased [Recovered/Resolved]
  - Body fat disorder [Unknown]
  - Hypoglycaemia [Unknown]

NARRATIVE: CASE EVENT DATE: 2015
